FAERS Safety Report 6165373 (Version 20)
Quarter: 2013Q2

REPORT INFORMATION
  Report Type: Spontaneous
  Country: US (occurrence: US)
  Receive Date: 20061110
  Receipt Date: 20130614
  Transmission Date: 20140414
  Serious: Yes (Hospitalization, Disabling, Other)
  Sender: FDA-Public Use
  Company Number: PHEH2006US13646

PATIENT
  Age: 50 Year
  Sex: Male

DRUGS (38)
  1. ZOMETA [Suspect]
     Route: 042
     Dates: end: 2006
  2. TAMOXIFEN [Concomitant]
  3. NAVELBINE ^ASTA MEDICA^ [Concomitant]
  4. FASLODEX [Concomitant]
  5. HERCEPTIN [Concomitant]
  6. PROCRIT [Concomitant]
  7. LUPRON [Concomitant]
  8. XELODA [Concomitant]
  9. ARIMIDEX [Concomitant]
  10. ACTOPLUS MET [Concomitant]
  11. MUCINEX DM [Concomitant]
  12. SENNA-S (DOCUSATE SODIUM/SENNA ALEXANDRINA) [Concomitant]
  13. METFORMIN [Concomitant]
     Dosage: 100 MG, QMO
  14. PREVACID [Concomitant]
     Dosage: 30 MG, DAILY
  15. SYNTHROID [Concomitant]
     Dosage: 88 MG, DAILY
  16. LISINOPRIL [Concomitant]
     Dosage: 10 MG, DAILY
  17. LORAZEPAM [Concomitant]
     Dosage: 3 MG, UNK
  18. LIPITOR [Concomitant]
     Dosage: 20 MG, UNK
  19. LOPID [Concomitant]
     Dosage: 60 MG, UNK
  20. DIPHENHYDRAMINE [Concomitant]
     Dosage: 75 MG, UNK
  21. PERCOCET [Concomitant]
     Dosage: 325 MG, UNK
  22. ASPIRIN [Concomitant]
     Dosage: 325 MG, UNK
  23. ATENOLOL [Concomitant]
     Dosage: 50 MG, QMO
     Route: 048
  24. PRAVASTATIN [Concomitant]
  25. GEMFIBROZIL [Concomitant]
     Dosage: 600 MG, UNK
     Route: 048
  26. NIACIN [Concomitant]
  27. GLIPIZIDE [Concomitant]
     Dosage: 10 MG, UNK
     Route: 048
  28. LEVOTHYROXINE [Concomitant]
     Dosage: 88 UG, UNK
  29. LUNESTA [Concomitant]
     Dosage: 3 M, QHS
     Route: 048
  30. SINGULAIR [Concomitant]
     Dosage: 10 MG, PRN
  31. OXYCONTIN [Concomitant]
  32. MULTIVITAMIN [Concomitant]
  33. MUCINEX [Concomitant]
     Dosage: 600 MG, QMO
  34. OMEPRAZOLE [Concomitant]
     Dosage: 20 MG, QMO
     Route: 048
  35. NIASPAN [Concomitant]
  36. AVANDIA [Concomitant]
  37. TUSSIONEX [Concomitant]
  38. GABAPENTIN [Concomitant]

REACTIONS (158)
  - Gastrointestinal haemorrhage [Unknown]
  - Osteonecrosis of jaw [Unknown]
  - General physical health deterioration [Unknown]
  - Pain [Unknown]
  - Anxiety [Unknown]
  - Decreased interest [Unknown]
  - Pain in jaw [Unknown]
  - Tooth fracture [Unknown]
  - Impaired healing [Unknown]
  - Lymphadenopathy [Unknown]
  - Tachycardia [Unknown]
  - Palpitations [Unknown]
  - Asthma [Unknown]
  - Productive cough [Unknown]
  - Oropharyngeal pain [Unknown]
  - Wheezing [Unknown]
  - Dyslipidaemia [Unknown]
  - Diabetic foot [Unknown]
  - Infected skin ulcer [Unknown]
  - Atelectasis [Unknown]
  - Hypoalbuminaemia [Unknown]
  - Musculoskeletal stiffness [Unknown]
  - Sialoadenitis [Unknown]
  - Haematoma [Unknown]
  - Contusion [Unknown]
  - Neurogenic bowel [Unknown]
  - Thoracic vertebral fracture [Unknown]
  - Skin cancer [Unknown]
  - Gait disturbance [Unknown]
  - Cauda equina syndrome [Unknown]
  - Calculus urinary [Unknown]
  - Hepatic steatosis [Unknown]
  - Sleep apnoea syndrome [Unknown]
  - Snoring [Unknown]
  - Somnolence [Unknown]
  - Sleep disorder [Unknown]
  - Gastric ulcer [Unknown]
  - Coronary artery disease [Unknown]
  - Gastritis [Unknown]
  - Left ventricular hypertrophy [Unknown]
  - Left atrial dilatation [Unknown]
  - Aortic valve incompetence [Unknown]
  - Mitral valve incompetence [Unknown]
  - Tricuspid valve incompetence [Unknown]
  - Breast cancer recurrent [Unknown]
  - Haemorrhoids [Unknown]
  - Lymphoedema [Recovering/Resolving]
  - Iritis [Unknown]
  - Retinopathy [Unknown]
  - Dry eye [Unknown]
  - Cataract [Unknown]
  - Angina pectoris [Unknown]
  - Pyelonephritis [Unknown]
  - Renal failure chronic [Unknown]
  - Injury [Unknown]
  - Myelopathy [Unknown]
  - Osteomyelitis [Unknown]
  - Phimosis [Unknown]
  - Irritable bowel syndrome [Unknown]
  - Small intestinal obstruction [Unknown]
  - Kidney enlargement [Unknown]
  - Intervertebral disc degeneration [Unknown]
  - Urethral meatus stenosis [Unknown]
  - Cardiac murmur [Unknown]
  - Depression [Unknown]
  - Lung neoplasm malignant [Unknown]
  - Chronic hepatitis C [Unknown]
  - Hepatic cirrhosis [Unknown]
  - Neuropathy peripheral [Unknown]
  - Ejection fraction decreased [Unknown]
  - Osteoporosis [Unknown]
  - Osteoarthritis [Unknown]
  - Abdominal hernia [Unknown]
  - Palmar-plantar erythrodysaesthesia syndrome [Unknown]
  - Odynophagia [Unknown]
  - Urinary tract infection [Unknown]
  - Haematuria [Unknown]
  - Bone disorder [Not Recovered/Not Resolved]
  - Toothache [Unknown]
  - Localised infection [Unknown]
  - Cellulitis [Unknown]
  - Pneumonia [Unknown]
  - Dyspnoea exertional [Unknown]
  - Sinus disorder [Unknown]
  - Urticaria [Unknown]
  - Haematochezia [Unknown]
  - Hypoxia [Unknown]
  - Diabetic nephropathy [Unknown]
  - Hypothyroidism [Unknown]
  - Acquired diaphragmatic eventration [Unknown]
  - Compression fracture [Unknown]
  - Intervertebral disc space narrowing [Unknown]
  - Arteriosclerosis [Unknown]
  - Hydronephrosis [Unknown]
  - Septic shock [Unknown]
  - Colitis [Unknown]
  - Fluid overload [Unknown]
  - Deafness [Unknown]
  - Renal cyst [Unknown]
  - Spinal column stenosis [Unknown]
  - Metastases to central nervous system [Unknown]
  - Streptococcal sepsis [Unknown]
  - Anaemia [Unknown]
  - Hand fracture [Unknown]
  - Peptic ulcer [Unknown]
  - Parotitis [Unknown]
  - Meningioma [Unknown]
  - Cerebral atrophy [Unknown]
  - Rib fracture [Unknown]
  - Dental caries [Unknown]
  - Decubitus ulcer [Unknown]
  - Fistula [Unknown]
  - Haematocrit decreased [Unknown]
  - Asthenia [Unknown]
  - Confusional state [Unknown]
  - Wound [Unknown]
  - Alopecia [Unknown]
  - Mucosal inflammation [Unknown]
  - Hyporeflexia [Unknown]
  - Ecchymosis [Unknown]
  - Central nervous system lesion [Unknown]
  - Ataxia [Unknown]
  - Bone lesion [Unknown]
  - Metastases to spine [Unknown]
  - Bone erosion [Unknown]
  - Pleural effusion [Unknown]
  - Peritonitis [Unknown]
  - Stomatitis [Unknown]
  - Gastrooesophageal reflux disease [Unknown]
  - Brain mass [Unknown]
  - Urinary incontinence [Unknown]
  - Respiratory failure [Recovering/Resolving]
  - Breast cancer metastatic [Unknown]
  - Pulmonary fibrosis [Unknown]
  - Exposed bone in jaw [Unknown]
  - Iron deficiency anaemia [Unknown]
  - Osteosclerosis [Unknown]
  - Metastases to bone [Unknown]
  - Malignant neoplasm progression [Unknown]
  - Neutropenia [Unknown]
  - Thrombocytopenia [Unknown]
  - Emphysema [Unknown]
  - Oral candidiasis [Unknown]
  - Fall [Unknown]
  - Paraplegia [Unknown]
  - Foot fracture [Unknown]
  - Oedema peripheral [Unknown]
  - Hyperlipidaemia [Unknown]
  - Arthropathy [Unknown]
  - Diarrhoea [Unknown]
  - Bladder irritation [Unknown]
  - Neurogenic bladder [Unknown]
  - Skin ulcer [Unknown]
  - Scar [Unknown]
  - Laceration [Unknown]
  - Musculoskeletal pain [Unknown]
  - Acidosis [Unknown]
  - Pneumonitis [Unknown]
